FAERS Safety Report 25852501 (Version 1)
Quarter: 2025Q3

REPORT INFORMATION
  Report Type: Spontaneous
  Country: US (occurrence: US)
  Receive Date: 20250926
  Receipt Date: 20250926
  Transmission Date: 20251020
  Serious: Yes (Hospitalization, Other)
  Sender: NOVO NORDISK
  Company Number: US-NOVOPROD-1525855

PATIENT
  Age: 85 Year
  Sex: Female

DRUGS (1)
  1. INSULIN DEGLUDEC [Suspect]
     Active Substance: INSULIN DEGLUDEC
     Indication: Type 2 diabetes mellitus
     Route: 058
     Dates: start: 201509

REACTIONS (1)
  - Atrial fibrillation [Not Recovered/Not Resolved]

NARRATIVE: CASE EVENT DATE: 20240101
